FAERS Safety Report 12281450 (Version 3)
Quarter: 2016Q2

REPORT INFORMATION
  Report Type: Spontaneous
  Country: US (occurrence: US)
  Receive Date: 20160419
  Receipt Date: 20160610
  Transmission Date: 20160815
  Serious: Yes (Hospitalization)
  Sender: FDA-Public Use
  Company Number: US-UNITED THERAPEUTICS-UNT-2016-006049

PATIENT
  Age: 61 Year
  Sex: Female
  Weight: 64.85 kg

DRUGS (2)
  1. LETAIRIS [Concomitant]
     Active Substance: AMBRISENTAN
     Indication: PRODUCT USED FOR UNKNOWN INDICATION
  2. TYVASO [Suspect]
     Active Substance: TREPROSTINIL
     Indication: PULMONARY HYPERTENSION
     Dosage: 18-54 ?G, QID
     Dates: start: 20150908

REACTIONS (6)
  - Pleural effusion [Recovered/Resolved]
  - Gastrooesophageal reflux disease [Unknown]
  - Sepsis [Unknown]
  - Cardiac failure congestive [Not Recovered/Not Resolved]
  - Pneumonia aspiration [Recovered/Resolved]
  - Pulmonary oedema [Unknown]

NARRATIVE: CASE EVENT DATE: 20160402
